FAERS Safety Report 9270188 (Version 3)
Quarter: 2013Q3

REPORT INFORMATION
  Report Type: Spontaneous
  Country: DE (occurrence: DE)
  Receive Date: 20130503
  Receipt Date: 20130701
  Transmission Date: 20140515
  Serious: Yes (Hospitalization)
  Sender: FDA-Public Use
  Company Number: DE-JNJFOC-20130310414

PATIENT
  Sex: Male
  Weight: 102 kg

DRUGS (18)
  1. DUROGESIC SMAT [Suspect]
     Indication: BACK PAIN
     Route: 062
     Dates: start: 201208, end: 20130406
  2. DUROGESIC SMAT [Suspect]
     Indication: BACK PAIN
     Route: 062
     Dates: start: 20130409, end: 20130412
  3. DUROGESIC SMAT [Suspect]
     Indication: BACK PAIN
     Route: 062
     Dates: start: 20130413, end: 20130416
  4. NOVALGIN [Suspect]
     Indication: PAIN
     Route: 065
  5. SIMVASTATIN [Concomitant]
     Route: 065
  6. GABAPENTIN [Concomitant]
     Route: 065
  7. TOREM [Concomitant]
  8. PANTOZOL [Concomitant]
     Route: 048
  9. EXFORGE [Concomitant]
     Route: 048
  10. APIDRA [Concomitant]
     Route: 048
  11. LANTUS [Concomitant]
     Route: 048
  12. BISOPROLOL [Concomitant]
     Route: 048
  13. TORASEMID [Concomitant]
     Indication: PRODUCT USED FOR UNKNOWN INDICATION
     Route: 065
  14. TORASEMID [Concomitant]
     Indication: PRODUCT USED FOR UNKNOWN INDICATION
     Route: 065
     Dates: start: 201208
  15. TORASEMID [Concomitant]
     Indication: PRODUCT USED FOR UNKNOWN INDICATION
     Route: 065
  16. TORASEMID [Concomitant]
     Indication: PRODUCT USED FOR UNKNOWN INDICATION
     Route: 065
     Dates: start: 201301
  17. ACETYLSALICYLIC ACID [Concomitant]
  18. RINGER^S [Concomitant]

REACTIONS (18)
  - Sedation [Unknown]
  - Renal failure [Unknown]
  - Aggression [Unknown]
  - Hallucination [Unknown]
  - Loss of consciousness [Unknown]
  - Drug withdrawal syndrome [Not Recovered/Not Resolved]
  - Hypoglycaemia [Unknown]
  - Orthopnoea [Unknown]
  - Somnolence [Unknown]
  - Decreased appetite [Unknown]
  - Sleep disorder [Unknown]
  - Agitation [Unknown]
  - Polyuria [Unknown]
  - Fatigue [Unknown]
  - Oedema [Unknown]
  - Muscle twitching [Unknown]
  - Nocturia [Unknown]
  - Inappropriate schedule of drug administration [Unknown]
